FAERS Safety Report 21481826 (Version 1)
Quarter: 2022Q4

REPORT INFORMATION
  Report Type: Spontaneous
  Country: US (occurrence: US)
  Receive Date: 20221020
  Receipt Date: 20221020
  Transmission Date: 20230113
  Serious: Yes (Other)
  Sender: FDA-Public Use
  Company Number: US-BRISTOL-MYERS SQUIBB COMPANY-2022-120864

PATIENT
  Age: 71 Year
  Sex: Male
  Weight: 72.71 kg

DRUGS (17)
  1. REVLIMID [Suspect]
     Active Substance: LENALIDOMIDE
     Indication: Plasma cell myeloma
     Dosage: DOSE: 20 MG; FREQ: ONCE DAILY FOR 21 DAYS AND 7 DAYS OFF
     Route: 048
  2. REVLIMID [Suspect]
     Active Substance: LENALIDOMIDE
     Dosage: ONCE EVERY OTHER DAY FOR21 DAYS AND 7 DAYS OFF
     Route: 048
  3. ELIQUIS [Concomitant]
     Active Substance: APIXABAN
     Indication: Product used for unknown indication
     Route: 065
  4. VITAMINS NOS [Concomitant]
     Active Substance: VITAMINS
  5. OMEPRAZOLE [Concomitant]
     Active Substance: OMEPRAZOLE
  6. VALTREX [Concomitant]
     Active Substance: VALACYCLOVIR HYDROCHLORIDE
  7. Linzest [Concomitant]
  8. MAGNESIUM [Concomitant]
     Active Substance: MAGNESIUM
  9. HERBALS\TURMERIC [Concomitant]
     Active Substance: HERBALS\TURMERIC
  10. DEXAMETHASONE [Concomitant]
     Active Substance: DEXAMETHASONE
  11. FEXOFENADINE [Concomitant]
     Active Substance: FEXOFENADINE HYDROCHLORIDE
  12. FLUTICASONE [Concomitant]
     Active Substance: FLUTICASONE
  13. GABAPENTIN [Concomitant]
     Active Substance: GABAPENTIN
  14. IBUPROFEN [Concomitant]
     Active Substance: IBUPROFEN
  15. LIDOCAINE [Concomitant]
     Active Substance: LIDOCAINE
  16. MORPHINE [Concomitant]
     Active Substance: MORPHINE
  17. ONDANSETRON [Concomitant]
     Active Substance: ONDANSETRON

REACTIONS (2)
  - Colitis [Unknown]
  - Prescribed overdose [Unknown]

NARRATIVE: CASE EVENT DATE: 20220615
